FAERS Safety Report 22011392 (Version 1)
Quarter: 2023Q1

REPORT INFORMATION
  Report Type: Spontaneous
  Country: US (occurrence: US)
  Receive Date: 20230220
  Receipt Date: 20230220
  Transmission Date: 20230417
  Serious: Yes (Other)
  Sender: FDA-Public Use
  Company Number: US-BRISTOL-MYERS SQUIBB COMPANY-2023-021196

PATIENT
  Age: 71 Year
  Sex: Female

DRUGS (3)
  1. AZACITIDINE [Suspect]
     Active Substance: AZACITIDINE
     Indication: Acute myeloid leukaemia
     Dosage: FREQ : ^DAYS 1 TO 14^ FULL CYCLE LENGTH NOT STATED?C1
     Route: 048
     Dates: start: 20221010
  2. AZACITIDINE [Suspect]
     Active Substance: AZACITIDINE
     Dosage: C2
     Route: 048
     Dates: start: 20221107
  3. AZACITIDINE [Suspect]
     Active Substance: AZACITIDINE
     Dosage: C3
     Route: 048
     Dates: start: 20221205

REACTIONS (2)
  - Acute graft versus host disease in skin [Unknown]
  - Acute graft versus host disease in liver [Unknown]

NARRATIVE: CASE EVENT DATE: 20221201
